FAERS Safety Report 7069369-6 (Version None)
Quarter: 2010Q4

REPORT INFORMATION
  Report Type: 
  Country: None (occurrence: None)
  Receive Date: 20101028
  Receipt Date: 20101020
  Transmission Date: 20110411
  Serious: Yes (Hospitalization, Other)
  Sender: FDA-Public Use
  Company Number: US-ABBOTT-10P-163-0680111-00

PATIENT
  Sex: Female
  Weight: 72.64 kg

DRUGS (7)
  1. HUMIRA [Suspect]
     Indication: CROHN'S DISEASE
     Dates: start: 20100401, end: 20100601
  2. HUMIRA [Suspect]
     Indication: PSORIASIS
  3. DOVONEX [Concomitant]
     Indication: SKIN IRRITATION
     Route: 061
  4. TACLONEX [Concomitant]
     Indication: PRODUCT USED FOR UNKNOWN INDICATION
     Route: 061
  5. VITAMIN D [Concomitant]
     Indication: PRODUCT USED FOR UNKNOWN INDICATION
  6. LOMOTIL [Concomitant]
     Indication: GASTROINTESTINAL MOTILITY DISORDER
  7. BENTYL [Concomitant]
     Indication: ABDOMINAL RIGIDITY

REACTIONS (6)
  - ABDOMINAL PAIN [None]
  - HAEMATOCHEZIA [None]
  - PNEUMONIA [None]
  - SOFT TISSUE NEOPLASM [None]
  - UPPER RESPIRATORY TRACT INFECTION [None]
  - WEIGHT DECREASED [None]
